FAERS Safety Report 6410451-1 (Version None)
Quarter: 2009Q4

REPORT INFORMATION
  Report Type: 
  Country: None (occurrence: None)
  Receive Date: 20091022
  Receipt Date: 20091014
  Transmission Date: 20100525
  Serious: Yes (Hospitalization)
  Sender: FDA-Public Use
  Company Number: FR-WATSON-2009-08061

PATIENT
  Age: 53 Year
  Sex: Female

DRUGS (1)
  1. ATENOLOL [Suspect]
     Indication: PALPITATIONS
     Dosage: 50 MG, DAILY
     Route: 048
     Dates: start: 20070101

REACTIONS (1)
  - HYPERKALAEMIA [None]
